FAERS Safety Report 9051872 (Version 1)
Quarter: 2013Q1

REPORT INFORMATION
  Report Type: Spontaneous
  Country: US (occurrence: None)
  Receive Date: 20130130
  Receipt Date: 20130130
  Transmission Date: 20140127
  Serious: Yes (Hospitalization)
  Sender: FDA-Public Use
  Company Number: None

PATIENT
  Age: 56 Year
  Sex: Male
  Weight: 77.7 kg

DRUGS (11)
  1. GLIPIZIDE [Suspect]
     Indication: DIABETES MELLITUS
     Route: 048
  2. OMEPRAZOLE [Concomitant]
  3. ZANAFLEX [Concomitant]
  4. ALPRAZOLAM [Concomitant]
  5. ECHINAEA/GOLDENSEAL [Concomitant]
  6. LASIX [Concomitant]
  7. HYDROCODONE/APAP [Concomitant]
  8. GABAPENTIN [Concomitant]
  9. ASA [Concomitant]
  10. VIT D [Concomitant]
  11. MILK THISTLE [Concomitant]

REACTIONS (3)
  - Pain in extremity [None]
  - Hypoglycaemia [None]
  - Hypophagia [None]
